FAERS Safety Report 9380099 (Version 1)
Quarter: 2013Q3

REPORT INFORMATION
  Report Type: Spontaneous
  Country: AU (occurrence: AU)
  Receive Date: 20130702
  Receipt Date: 20130702
  Transmission Date: 20140515
  Serious: No
  Sender: FDA-Public Use
  Company Number: AU-JNJFOC-20130613205

PATIENT
  Sex: Female

DRUGS (4)
  1. DUROGESIC [Suspect]
     Indication: LOWER LIMB FRACTURE
     Route: 062
  2. DUROGESIC [Suspect]
     Indication: INTERVERTEBRAL DISC INJURY
     Route: 062
  3. TRAMADOL [Suspect]
     Indication: PRODUCT USED FOR UNKNOWN INDICATION
     Route: 065
  4. PANADOL OSTEO [Suspect]
     Indication: PRODUCT USED FOR UNKNOWN INDICATION
     Route: 065

REACTIONS (3)
  - Walking aid user [Unknown]
  - Drug ineffective [Recovering/Resolving]
  - Inappropriate schedule of drug administration [Unknown]
